FAERS Safety Report 5493261-1 (Version None)
Quarter: 2007Q4

REPORT INFORMATION
  Report Type: 
  Country: None (occurrence: None)
  Receive Date: 20071023
  Receipt Date: 20071016
  Transmission Date: 20080405
  Serious: Yes (Other)
  Sender: FDA-Public Use
  Company Number: FR-WYE-G00485107

PATIENT
  Sex: Male

DRUGS (2)
  1. TAZOCILLINE [Suspect]
     Dosage: UNKNOWN
     Route: 042
     Dates: end: 20070101
  2. TIENAM [Suspect]
     Dosage: UNKNOWN

REACTIONS (1)
  - EPILEPSY [None]
